FAERS Safety Report 13106872 (Version 1)
Quarter: 2017Q1

REPORT INFORMATION
  Report Type: Spontaneous
  Country: US (occurrence: US)
  Receive Date: 20170111
  Receipt Date: 20170111
  Transmission Date: 20170428
  Serious: No
  Sender: FDA-Public Use
  Company Number: US-SIGMAPHARM LABORATORIES, LLC-2016SIG00006

PATIENT
  Age: 62 Year
  Sex: Female
  Weight: 68.27 kg

DRUGS (5)
  1. LIOTHYRONINE SODIUM. [Suspect]
     Active Substance: LIOTHYRONINE SODIUM
     Dosage: 5 MCG, 1X/DAY
     Route: 060
     Dates: start: 20160219, end: 20160222
  2. LIOTHYRONINE SODIUM. [Suspect]
     Active Substance: LIOTHYRONINE SODIUM
     Dosage: 2.5 MCG, 1X/DAY
     Route: 060
     Dates: start: 20160219, end: 20160222
  3. LIOTHYRONINE SODIUM. [Suspect]
     Active Substance: LIOTHYRONINE SODIUM
     Dosage: 15 MCG, 1X/DAY
     Route: 060
     Dates: start: 201602, end: 20160222
  4. UNSPECIFIED VITAMINS [Concomitant]
     Active Substance: VITAMINS
  5. LIOTHYRONINE SODIUM. [Suspect]
     Active Substance: LIOTHYRONINE SODIUM
     Indication: THYROIDECTOMY
     Dosage: 10 MCG, 1X/DAY
     Route: 060
     Dates: start: 20160219, end: 201602

REACTIONS (5)
  - Malaise [Recovered/Resolved]
  - Dyspepsia [Recovered/Resolved]
  - Incorrect route of drug administration [Recovered/Resolved]
  - Drug effect incomplete [Recovered/Resolved]
  - Musculoskeletal stiffness [Recovered/Resolved]

NARRATIVE: CASE EVENT DATE: 201602
